FAERS Safety Report 8024150-6 (Version None)
Quarter: 2012Q1

REPORT INFORMATION
  Report Type: 
  Country: None (occurrence: None)
  Receive Date: 20120103
  Receipt Date: 20111215
  Transmission Date: 20120608
  Serious: Yes (Other)
  Sender: FDA-Public Use
  Company Number: 1138770

PATIENT
  Sex: Male

DRUGS (6)
  1. METHOTREXATE [Suspect]
     Indication: PRODUCT USED FOR UNKNOWN INDICATION
     Dosage: NOT REPORTED, NOT REPORTED, UNKNOWN,
     Route: 041
  2. SODIUM BICARBONATE INJ, USP (SODIUM HYDROGEN CARBONATE) [Concomitant]
  3. (FEBUXOSTAT) [Concomitant]
  4. (ALL OTHER THERAPEUTIC PRODUCTS) [Concomitant]
  5. SODIUM CHLORIDE 0.9% INJECTION, USP (SODIUM CHLORIDE) [Suspect]
     Indication: PRODUCT USED FOR UNKNOWN INDICATION
     Dosage: 250 CC, NOT REPORTED (UNKNOWN)
     Route: 041
  6. LEUCOVORIN CALCIUM [Concomitant]

REACTIONS (4)
  - RENAL FAILURE ACUTE [None]
  - BLOOD URIC ACID INCREASED [None]
  - INCORRECT DRUG ADMINISTRATION RATE [None]
  - DRUG CLEARANCE DECREASED [None]
